FAERS Safety Report 4375935-9 (Version None)
Quarter: 2004Q2

REPORT INFORMATION
  Report Type: 
  Country: None (occurrence: None)
  Receive Date: 20040611
  Receipt Date: 20040607
  Transmission Date: 20050107
  Serious: Yes (Death)
  Sender: FDA-Public Use
  Company Number: PHRM2004FR02011

PATIENT
  Age: 69 Year
  Sex: Female

DRUGS (4)
  1. ZOMETA [Suspect]
     Indication: METASTASES TO BONE
     Dosage: 4 MG, ONCE/SINGLE
     Route: 042
     Dates: start: 20040324, end: 20040324
  2. FRACTAL [Suspect]
     Dosage: 80 MG DAILY
     Route: 048
  3. ZYLORIC ^GLAXO WELLCOME^ [Suspect]
     Route: 048
  4. FOZIRETIC [Suspect]
     Dosage: 1 DF, QD
     Route: 048

REACTIONS (3)
  - ANURIA [None]
  - CEREBRAL DISORDER [None]
  - RENAL FAILURE ACUTE [None]
